FAERS Safety Report 17347166 (Version 1)
Quarter: 2020Q1

REPORT INFORMATION
  Report Type: Spontaneous
  Country: US (occurrence: US)
  Receive Date: 20200114
  Receipt Date: 20200114
  Transmission Date: 20200409
  Serious: No
  Sender: FDA-Public Use
  Company Number: None

PATIENT
  Sex: Male
  Weight: 67.59 kg

DRUGS (3)
  1. ZEAXANTHIN [Concomitant]
     Active Substance: ZEAXANTHIN
  2. DOXAZOSIN MESYLATE. [Suspect]
     Active Substance: DOXAZOSIN MESYLATE
     Indication: BENIGN PROSTATIC HYPERPLASIA
     Dosage: ?          QUANTITY:1 DF DOSAGE FORM;?
     Route: 048
     Dates: start: 198604, end: 2020
  3. MULTI VIT/D-3/LUTEIN [Concomitant]

REACTIONS (3)
  - Glaucoma [None]
  - Floppy iris syndrome [None]
  - Cataract [None]
